FAERS Safety Report 16213474 (Version 1)
Quarter: 2019Q2

REPORT INFORMATION
  Report Type: Spontaneous
  Country: US (occurrence: US)
  Receive Date: 20190418
  Receipt Date: 20190418
  Transmission Date: 20190711
  Serious: Yes (Other)
  Sender: FDA-Public Use
  Company Number: US-PURDUE PHARMA-GBR-2019-0065958

PATIENT
  Age: 64 Year
  Sex: Male

DRUGS (4)
  1. BUPIVICAINE [Suspect]
     Active Substance: BUPIVACAINE
     Dosage: 0.2 MG, DAILY
     Route: 037
  2. NON-PMN HYDROMORPHONE HCL [Suspect]
     Active Substance: HYDROMORPHONE HYDROCHLORIDE
     Dosage: UNK (1MG/ML STRENGTH)
     Route: 037
  3. BUPIVICAINE [Suspect]
     Active Substance: BUPIVACAINE
     Indication: ABDOMINAL PAIN
     Dosage: UPTITRATED TO 220% OF THE INITIAL RATE
     Route: 037
  4. NON-PMN HYDROMORPHONE HCL [Suspect]
     Active Substance: HYDROMORPHONE HYDROCHLORIDE
     Indication: ABDOMINAL PAIN
     Dosage: UPTITRATED TO 220% OF THE INITIAL RATE
     Route: 037

REACTIONS (2)
  - Pain [Unknown]
  - Malignant neoplasm progression [Unknown]
